FAERS Safety Report 8086133-X (Version None)
Quarter: 2012Q1

REPORT INFORMATION
  Report Type: 
  Country: None (occurrence: None)
  Receive Date: 20120128
  Receipt Date: 20110414
  Transmission Date: 20120608
  Serious: No
  Sender: FDA-Public Use
  Company Number: US-ABBOTT-11P-163-0719148-00

PATIENT
  Age: 43 Year
  Sex: Female

DRUGS (7)
  1. BCP [Concomitant]
     Indication: PRODUCT USED FOR UNKNOWN INDICATION
  2. DICLOFENAC [Concomitant]
     Indication: ANKYLOSING SPONDYLITIS
  3. SULFASALAZINE [Concomitant]
     Indication: ANKYLOSING SPONDYLITIS
  4. UNKNOWN ANTIDEPRESSANT [Concomitant]
     Indication: PRODUCT USED FOR UNKNOWN INDICATION
  5. HUMIRA [Suspect]
     Indication: ANKYLOSING SPONDYLITIS
     Dates: start: 20090901
  6. ACETAMINOPHEN [Concomitant]
     Indication: PAIN
  7. UNKNOWN MEDICATION [Concomitant]
     Indication: BLOOD CHOLESTEROL INCREASED

REACTIONS (9)
  - SNEEZING [None]
  - LYMPHADENOPATHY [None]
  - RHINORRHOEA [None]
  - UPPER-AIRWAY COUGH SYNDROME [None]
  - LYMPH NODE PAIN [None]
  - NASOPHARYNGITIS [None]
  - PAIN IN JAW [None]
  - FATIGUE [None]
  - COUGH [None]
